FAERS Safety Report 7381462-7 (Version None)
Quarter: 2011Q1

REPORT INFORMATION
  Report Type: 
  Country: None (occurrence: None)
  Receive Date: 20110329
  Receipt Date: 20110323
  Transmission Date: 20110831
  Serious: Yes (Hospitalization)
  Sender: FDA-Public Use
  Company Number: SE-PFIZER INC-2011064023

PATIENT
  Age: 62 Year
  Sex: Male

DRUGS (10)
  1. LYRICA [Suspect]
     Indication: DEPRESSION
     Dosage: 225 MG DAILY, UNK
     Route: 048
     Dates: end: 20100207
  2. ZOPICLONE [Suspect]
     Dosage: 15MG DAILY, UNK
     Route: 048
  3. DIAZEPAM [Suspect]
     Dosage: 15 MG DAILY, UNK
     Route: 048
  4. CIPRALEX [Concomitant]
     Dosage: UNK
  5. SIMVASTATIN [Concomitant]
     Dosage: UNK
  6. METOPROLOL [Concomitant]
     Dosage: UNK
  7. CIRCADIN [Concomitant]
     Dosage: UNK
  8. LERGIGAN [Concomitant]
     Dosage: UNK
  9. PROPAVAN [Suspect]
     Dosage: 50MG DAILY, UNK
     Route: 048
  10. WARAN [Concomitant]
     Indication: ATRIAL FIBRILLATION
     Dosage: UNK

REACTIONS (5)
  - BALANCE DISORDER [None]
  - ASTHENIA [None]
  - DYSARTHRIA [None]
  - FATIGUE [None]
  - FALL [None]
